FAERS Safety Report 8849844 (Version 1)
Quarter: 2012Q4

REPORT INFORMATION
  Report Type: 
  Country: US (occurrence: US)
  Receive Date: 20121019
  Receipt Date: 20121019
  Transmission Date: 20130627
  Serious: No
  Sender: FDA-Public Use
  Company Number: US-009507513-1209USA010803

PATIENT
  Sex: Male

DRUGS (4)
  1. PEGINTRON [Suspect]
     Indication: HEPATITIS C
     Dosage: UNK
     Dates: start: 20120907
  2. REBETOL [Suspect]
     Indication: HEPATITIS C
     Dosage: UNK
     Dates: start: 20120907
  3. VICTRELIS [Suspect]
     Indication: HEPATITIS C
     Dosage: UNK
     Dates: start: 20121012
  4. NICORETTE (NICOTINE) [Concomitant]

REACTIONS (14)
  - Anxiety [Recovered/Resolved]
  - Chest pain [Unknown]
  - Chest discomfort [Unknown]
  - Dyspnoea [Unknown]
  - Nausea [Unknown]
  - Fatigue [Unknown]
  - Sleep disorder [Unknown]
  - Feeling hot [Unknown]
  - Abdominal discomfort [Unknown]
  - Dizziness [Unknown]
  - Dehydration [Unknown]
  - Sensation of heaviness [Unknown]
  - Ocular icterus [Unknown]
  - Anxiety [Unknown]
